FAERS Safety Report 12610741 (Version 1)
Quarter: 2016Q3

REPORT INFORMATION
  Report Type: Spontaneous
  Country: BR (occurrence: BR)
  Receive Date: 20160801
  Receipt Date: 20160801
  Transmission Date: 20161109
  Serious: Yes (Hospitalization, Other)
  Sender: FDA-Public Use
  Company Number: BR-PFIZER INC-2016364596

PATIENT
  Age: 34 Year
  Sex: Female
  Weight: 50 kg

DRUGS (4)
  1. FRONTAL XR [Suspect]
     Active Substance: ALPRAZOLAM
     Indication: HYPERTENSION
     Dosage: FRONTAL XR 0.25 IN THE MORNING AND AT NIGHT USED 1MG
     Route: 048
     Dates: start: 2009
  2. SELOZOK [Concomitant]
     Active Substance: METOPROLOL SUCCINATE
     Indication: BLOOD PRESSURE ABNORMAL
  3. SELOZOK [Concomitant]
     Active Substance: METOPROLOL SUCCINATE
     Indication: ARRHYTHMIA
     Dosage: 1 DF, 1X/DAY
     Route: 048
  4. FRONTAL XR [Suspect]
     Active Substance: ALPRAZOLAM
     Dosage: FRONTAL XR 0.25 IN THE MORNING AND AT NIGHT USED 1MG
     Route: 048
     Dates: start: 2009

REACTIONS (5)
  - Palpitations [Unknown]
  - Infarction [Unknown]
  - Weight decreased [Unknown]
  - Dependence [Unknown]
  - Arrhythmia [Unknown]

NARRATIVE: CASE EVENT DATE: 201607
